FAERS Safety Report 13545423 (Version 3)
Quarter: 2017Q3

REPORT INFORMATION
  Report Type: Spontaneous
  Country: FR (occurrence: FR)
  Receive Date: 20170515
  Receipt Date: 20170727
  Transmission Date: 20171127
  Serious: Yes (Other)
  Sender: FDA-Public Use
  Company Number: FR-PFIZER INC-2017200629

PATIENT
  Sex: Female

DRUGS (1)
  1. VENLAFAXINE HCL [Suspect]
     Active Substance: VENLAFAXINE HYDROCHLORIDE
     Indication: ANXIETY
     Dosage: UNK

REACTIONS (17)
  - Dementia Alzheimer^s type [Recovered/Resolved]
  - Multiple sclerosis [Recovered/Resolved]
  - Abnormal behaviour [Recovered/Resolved]
  - Drug ineffective [Unknown]
  - Peripheral swelling [Recovered/Resolved]
  - Amnesia [Recovered/Resolved]
  - Constipation [Recovered/Resolved]
  - Sinusitis [Recovered/Resolved]
  - Hypertension [Recovered/Resolved]
  - Aggression [Recovered/Resolved]
  - Renal impairment [Recovered/Resolved]
  - Sensory disturbance [Recovered/Resolved]
  - Musculoskeletal stiffness [Recovered/Resolved]
  - Dermatitis exfoliative [Recovered/Resolved]
  - Hypersensitivity [Recovered/Resolved]
  - Gait disturbance [Recovered/Resolved]
  - Suffocation feeling [Recovered/Resolved]
